FAERS Safety Report 10853633 (Version 2)
Quarter: 2015Q2

REPORT INFORMATION
  Report Type: Spontaneous
  Country: US (occurrence: US)
  Receive Date: 20150223
  Receipt Date: 20150417
  Transmission Date: 20150821
  Serious: No
  Sender: FDA-Public Use
  Company Number: US-PFIZER INC-2015063320

PATIENT
  Age: 67 Year
  Sex: Female

DRUGS (5)
  1. PREMARIN [Suspect]
     Active Substance: ESTROGENS, CONJUGATED
     Dosage: UNK
  2. PRAVACHOL [Suspect]
     Active Substance: PRAVASTATIN SODIUM
     Dosage: UNK
  3. TRICOR [Suspect]
     Active Substance: FENOFIBRATE
     Dosage: UNK
  4. CELEBREX [Suspect]
     Active Substance: CELECOXIB
     Dosage: UNK
  5. MORPHINE SULFATE. [Suspect]
     Active Substance: MORPHINE SULFATE
     Dosage: UNK

REACTIONS (2)
  - Drug hypersensitivity [Unknown]
  - Pruritus [Unknown]
